FAERS Safety Report 9166443 (Version 2)
Quarter: 2013Q1

REPORT INFORMATION
  Report Type: Spontaneous
  Country: US (occurrence: US)
  Receive Date: 20130315
  Receipt Date: 20130318
  Transmission Date: 20140127
  Serious: Yes (Other)
  Sender: FDA-Public Use
  Company Number: US-JNJFOC-20130304822

PATIENT
  Sex: 0

DRUGS (1)
  1. DOXORUBICIN HYDROCHLORIDE [Suspect]
     Indication: BREAST CANCER RECURRENT
     Dosage: STARTED WITH 40 MG/M2 AND STOPPED ESCALATION AT 50 MG/M2 OVER 30 MINUTES
     Route: 042

REACTIONS (1)
  - Thermal burn [Unknown]
